FAERS Safety Report 18657352 (Version 1)
Quarter: 2020Q4

REPORT INFORMATION
  Report Type: Report from Study
  Country: DE (occurrence: DE)
  Receive Date: 20201223
  Receipt Date: 20201223
  Transmission Date: 20210114
  Serious: Yes (Hospitalization)
  Sender: FDA-Public Use
  Company Number: DE-TEVA-2020-DE-1862351

PATIENT
  Age: 55 Year
  Sex: Female

DRUGS (7)
  1. ROFERON-A [Suspect]
     Active Substance: INTERFERON ALFA-2A
     Indication: RETINAL DISORDER
     Dosage: 4 DOSAGE FORMS DAILY;
     Route: 065
  2. ROACTEMRA [Suspect]
     Active Substance: TOCILIZUMAB
     Indication: RHEUMATOID ARTHRITIS
     Route: 058
  3. CARAMLO [Concomitant]
     Active Substance: AMLODIPINE BESYLATE\CANDESARTAN CILEXETIL
  4. FOLIC ACID. [Concomitant]
     Active Substance: FOLIC ACID
  5. CORTISONE [Concomitant]
     Active Substance: CORTISONE
  6. METHOTREXATE. [Concomitant]
     Active Substance: METHOTREXATE
  7. CELECOXIB. [Suspect]
     Active Substance: CELECOXIB
     Indication: PRODUCT USED FOR UNKNOWN INDICATION
     Dosage: 200 MILLIGRAM DAILY;
     Route: 065

REACTIONS (10)
  - Gastric disorder [Recovered/Resolved]
  - Motor dysfunction [Unknown]
  - Gastric ulcer perforation [Recovered/Resolved]
  - Injection site swelling [Not Recovered/Not Resolved]
  - Injection site pain [Not Recovered/Not Resolved]
  - Nausea [Unknown]
  - Headache [Unknown]
  - Visual acuity reduced transiently [Recovered/Resolved]
  - Syringe issue [Unknown]
  - Fluid retention [Recovering/Resolving]
